FAERS Safety Report 18044546 (Version 2)
Quarter: 2020Q3

REPORT INFORMATION
  Report Type: Report from Study
  Country: DE (occurrence: DE)
  Receive Date: 20200720
  Receipt Date: 20200819
  Transmission Date: 20201103
  Serious: No
  Sender: FDA-Public Use
  Company Number: DE-SHIRE-DE201850706

PATIENT

DRUGS (26)
  1. TEDUGLUTIDE [Suspect]
     Active Substance: TEDUGLUTIDE
     Indication: SHORT-BOWEL SYNDROME
     Dosage: 5 MILLIGRAM (DAILY DOSE 0.06 MILLIGRAM/KILOGRAM), 1X/DAY:QD
     Route: 065
     Dates: start: 20161128, end: 20170315
  2. TEDUGLUTIDE [Suspect]
     Active Substance: TEDUGLUTIDE
     Dosage: 2.5 MILLIGRAM (DAILY DOSE: 2.5 MILLIGRAM/KILOGRAM),1X/DAY:QD
     Route: 065
     Dates: start: 20170428, end: 20170508
  3. TEDUGLUTIDE [Suspect]
     Active Substance: TEDUGLUTIDE
     Indication: SHORT-BOWEL SYNDROME
     Dosage: 5 MILLIGRAM (DAILY DOSE 0.06 MILLIGRAM/KILOGRAM), 1X/DAY:QD
     Route: 065
     Dates: start: 20161128, end: 20170315
  4. TEDUGLUTIDE [Suspect]
     Active Substance: TEDUGLUTIDE
     Dosage: 3.1 MILLIGRAM (DAILY DOSE: 0.04 MILLIGRAM/KILOGRAM), 1X/DAY:QD
     Route: 065
     Dates: start: 20170425, end: 20170427
  5. TEDUGLUTIDE [Suspect]
     Active Substance: TEDUGLUTIDE
     Dosage: 2.5 MILLIGRAM (DAILY DOSE: 2.5 MILLIGRAM/KILOGRAM),1X/DAY:QD
     Route: 065
     Dates: start: 20170428, end: 20170508
  6. USTEKINUMAB [Concomitant]
     Active Substance: USTEKINUMAB
     Indication: CROHN^S DISEASE
  7. TEDUGLUTIDE [Suspect]
     Active Substance: TEDUGLUTIDE
     Dosage: 2.5 MILLIGRAM (DAILY DOSE 0.03 MILLIGRAM/KILOGRAM), 1X/DAY:QD
     Route: 065
     Dates: start: 20170316, end: 20170413
  8. TEDUGLUTIDE [Suspect]
     Active Substance: TEDUGLUTIDE
     Dosage: 2.5 MILLIGRAM (DALY DOSE: 0.03 MILLIGRAM/KILOGRAM), 1X/DAY:QD
     Route: 065
     Dates: start: 20170422, end: 20170424
  9. TEDUGLUTIDE [Suspect]
     Active Substance: TEDUGLUTIDE
     Indication: SHORT-BOWEL SYNDROME
     Dosage: 5 MILLIGRAM (DAILY DOSE 0.06 MILLIGRAM/KILOGRAM), 1X/DAY:QD
     Route: 065
     Dates: start: 20161128, end: 20170315
  10. TEDUGLUTIDE [Suspect]
     Active Substance: TEDUGLUTIDE
     Dosage: 4 MILLIGRAM (DAILY DOSE: 0.05 MILLIGRAM/KILOGRAM), 1X/DAY:QD
     Route: 065
     Dates: start: 20170414, end: 20170421
  11. TEDUGLUTIDE [Suspect]
     Active Substance: TEDUGLUTIDE
     Dosage: 4 MILLIGRAM (DAILY DOSE: 0.05 MILLIGRAM/KILOGRAM), 1X/DAY:QD
     Route: 065
     Dates: start: 20170414, end: 20170421
  12. TEDUGLUTIDE [Suspect]
     Active Substance: TEDUGLUTIDE
     Dosage: 2.5 MILLIGRAM (DALY DOSE: 0.03 MILLIGRAM/KILOGRAM), 1X/DAY:QD
     Route: 065
     Dates: start: 20170422, end: 20170424
  13. TEDUGLUTIDE [Suspect]
     Active Substance: TEDUGLUTIDE
     Dosage: 3.1 MILLIGRAM (DAILY DOSE: 0.04 MILLIGRAM/KILOGRAM), 1X/DAY:QD
     Route: 065
     Dates: start: 20170425, end: 20170427
  14. TEDUGLUTIDE [Suspect]
     Active Substance: TEDUGLUTIDE
     Dosage: 3.1 MILLIGRAM (DAILY DOSE: 0.04 MILLIGRAM/KILOGRAM), 1X/DAY:QD
     Route: 065
     Dates: start: 20170425, end: 20170427
  15. TEDUGLUTIDE [Suspect]
     Active Substance: TEDUGLUTIDE
     Dosage: 2.5 MILLIGRAM (DAILY DOSE: 2.5 MILLIGRAM/KILOGRAM),1X/DAY:QD
     Route: 065
     Dates: start: 20170428, end: 20170508
  16. TEDUGLUTIDE [Suspect]
     Active Substance: TEDUGLUTIDE
     Dosage: 2.5 MILLIGRAM (DAILY DOSE: 2.5 MILLIGRAM/KILOGRAM),1X/DAY:QD
     Route: 065
     Dates: start: 20170428, end: 20170508
  17. TEDUGLUTIDE [Suspect]
     Active Substance: TEDUGLUTIDE
     Indication: SHORT-BOWEL SYNDROME
     Dosage: 5 MILLIGRAM (DAILY DOSE 0.06 MILLIGRAM/KILOGRAM), 1X/DAY:QD
     Route: 065
     Dates: start: 20161128, end: 20170315
  18. TEDUGLUTIDE [Suspect]
     Active Substance: TEDUGLUTIDE
     Dosage: 2.5 MILLIGRAM (DAILY DOSE 0.03 MILLIGRAM/KILOGRAM), 1X/DAY:QD
     Route: 065
     Dates: start: 20170316, end: 20170413
  19. TEDUGLUTIDE [Suspect]
     Active Substance: TEDUGLUTIDE
     Dosage: 4 MILLIGRAM (DAILY DOSE: 0.05 MILLIGRAM/KILOGRAM), 1X/DAY:QD
     Route: 065
     Dates: start: 20170414, end: 20170421
  20. AZATHIOPRINE. [Concomitant]
     Active Substance: AZATHIOPRINE
     Indication: CROHN^S DISEASE
  21. TEDUGLUTIDE [Suspect]
     Active Substance: TEDUGLUTIDE
     Dosage: 2.5 MILLIGRAM (DAILY DOSE 0.03 MILLIGRAM/KILOGRAM), 1X/DAY:QD
     Route: 065
     Dates: start: 20170316, end: 20170413
  22. TEDUGLUTIDE [Suspect]
     Active Substance: TEDUGLUTIDE
     Dosage: 2.5 MILLIGRAM (DALY DOSE: 0.03 MILLIGRAM/KILOGRAM), 1X/DAY:QD
     Route: 065
     Dates: start: 20170422, end: 20170424
  23. TEDUGLUTIDE [Suspect]
     Active Substance: TEDUGLUTIDE
     Dosage: 2.5 MILLIGRAM (DAILY DOSE 0.03 MILLIGRAM/KILOGRAM), 1X/DAY:QD
     Route: 065
     Dates: start: 20170316, end: 20170413
  24. TEDUGLUTIDE [Suspect]
     Active Substance: TEDUGLUTIDE
     Dosage: 4 MILLIGRAM (DAILY DOSE: 0.05 MILLIGRAM/KILOGRAM), 1X/DAY:QD
     Route: 065
     Dates: start: 20170414, end: 20170421
  25. TEDUGLUTIDE [Suspect]
     Active Substance: TEDUGLUTIDE
     Dosage: 2.5 MILLIGRAM (DALY DOSE: 0.03 MILLIGRAM/KILOGRAM), 1X/DAY:QD
     Route: 065
     Dates: start: 20170422, end: 20170424
  26. TEDUGLUTIDE [Suspect]
     Active Substance: TEDUGLUTIDE
     Dosage: 3.1 MILLIGRAM (DAILY DOSE: 0.04 MILLIGRAM/KILOGRAM), 1X/DAY:QD
     Route: 065
     Dates: start: 20170425, end: 20170427

REACTIONS (2)
  - Squamous cell carcinoma [Recovered/Resolved]
  - Subcutaneous abscess [Not Recovered/Not Resolved]

NARRATIVE: CASE EVENT DATE: 201806
